FAERS Safety Report 5700318-6 (Version None)
Quarter: 2008Q2

REPORT INFORMATION
  Report Type: 
  Country: None (occurrence: None)
  Receive Date: 20080410
  Receipt Date: 20080404
  Transmission Date: 20081010
  Serious: Yes (Other)
  Sender: FDA-Public Use
  Company Number: B0515079A

PATIENT
  Age: 4 Year
  Sex: Male

DRUGS (3)
  1. BUSULPHAN [Suspect]
     Indication: NEUROBLASTOMA
     Route: 065
  2. MELPHALAN [Suspect]
     Indication: NEUROBLASTOMA
     Route: 065
  3. ETOPOSIDE [Suspect]
     Indication: NEUROBLASTOMA
     Route: 065

REACTIONS (11)
  - ABDOMINAL PAIN UPPER [None]
  - ASCITES [None]
  - HAEMATEMESIS [None]
  - HAEMATOCHEZIA [None]
  - HEPATIC FIBROSIS [None]
  - JAUNDICE [None]
  - OESOPHAGEAL VARICES HAEMORRHAGE [None]
  - THROMBOCYTOPENIA [None]
  - VANISHING BILE DUCT SYNDROME [None]
  - VENOOCCLUSIVE DISEASE [None]
  - WEIGHT INCREASED [None]
